FAERS Safety Report 5783799-1 (Version None)
Quarter: 2008Q2

REPORT INFORMATION
  Report Type: 
  Country: None (occurrence: None)
  Receive Date: 20080605
  Receipt Date: 20080421
  Transmission Date: 20081010
  Serious: No
  Sender: FDA-Public Use
  Company Number: A0717209A

PATIENT
  Age: 69 Year
  Sex: Male

DRUGS (1)
  1. ALLI [Suspect]

REACTIONS (3)
  - FLATULENCE [None]
  - PHARMACEUTICAL PRODUCT COMPLAINT [None]
  - STEATORRHOEA [None]
